FAERS Safety Report 22608934 (Version 1)
Quarter: 2023Q2

REPORT INFORMATION
  Report Type: Spontaneous
  Country: US (occurrence: US)
  Receive Date: 20230616
  Receipt Date: 20230616
  Transmission Date: 20230721
  Serious: Yes (Other)
  Sender: FDA-Public Use
  Company Number: US-SAMSUNG BIOEPIS-SB-2023-15857

PATIENT
  Age: 20 Year
  Sex: Female

DRUGS (18)
  1. INFLIXIMAB [Suspect]
     Active Substance: INFLIXIMAB
     Indication: Iridocyclitis
     Route: 065
  2. INFLIXIMAB [Suspect]
     Active Substance: INFLIXIMAB
     Indication: Juvenile idiopathic arthritis
     Route: 065
  3. ETANERCEPT [Suspect]
     Active Substance: ETANERCEPT
     Indication: Iridocyclitis
     Route: 065
  4. ETANERCEPT [Suspect]
     Active Substance: ETANERCEPT
     Indication: Juvenile idiopathic arthritis
  5. ADALIMUMAB [Suspect]
     Active Substance: ADALIMUMAB
     Indication: Iridocyclitis
     Dosage: UNKNOWN
     Route: 065
  6. METHOTREXATE SODIUM [Concomitant]
     Active Substance: METHOTREXATE SODIUM
     Indication: Iridocyclitis
     Route: 065
  7. METHOTREXATE SODIUM [Concomitant]
     Active Substance: METHOTREXATE SODIUM
     Indication: Juvenile idiopathic arthritis
     Route: 065
  8. LOTEPREDNOL [Concomitant]
     Active Substance: LOTEPREDNOL
     Indication: Iridocyclitis
     Route: 061
  9. LOTEPREDNOL [Concomitant]
     Active Substance: LOTEPREDNOL
     Indication: Juvenile idiopathic arthritis
  10. MYCOPHENOLATE MOFETIL [Concomitant]
     Active Substance: MYCOPHENOLATE MOFETIL
     Indication: Iridocyclitis
     Route: 061
  11. PREDNISONE [Concomitant]
     Active Substance: PREDNISONE
     Indication: Iridocyclitis
     Dosage: UNKNOWN
     Route: 048
  12. ABATACEPT [Concomitant]
     Active Substance: ABATACEPT
     Indication: Iridocyclitis
     Dosage: UNKNOWN
     Route: 065
  13. ANAKINRA [Concomitant]
     Active Substance: ANAKINRA
     Indication: Iridocyclitis
     Dosage: UNKNOWN
     Route: 065
  14. TOCILIZUMAB [Concomitant]
     Active Substance: TOCILIZUMAB
     Indication: Iridocyclitis
     Dosage: UNKNOWN
     Route: 065
  15. IMMUNE GLOBULIN NOS [Concomitant]
     Active Substance: IMMUNE GLOBULIN NOS
     Indication: Iridocyclitis
     Dosage: UNKNOWN
     Route: 042
  16. CERTOLIZUMAB PEGOL [Concomitant]
     Active Substance: CERTOLIZUMAB PEGOL
     Indication: Iridocyclitis
     Route: 058
  17. DIFLUPREDNATE [Concomitant]
     Active Substance: DIFLUPREDNATE
     Indication: Iridocyclitis
     Dosage: IN BOTH EYES
     Route: 065
  18. RITUXIMAB [Concomitant]
     Active Substance: RITUXIMAB
     Indication: Iridocyclitis
     Dosage: UNKNOWN
     Route: 065

REACTIONS (5)
  - Hodgkin^s disease [Unknown]
  - Uveitis [Recovered/Resolved]
  - Drug ineffective for unapproved indication [Unknown]
  - Drug effective for unapproved indication [Unknown]
  - Off label use [Unknown]
